FAERS Safety Report 6682533-0 (Version None)
Quarter: 2010Q2

REPORT INFORMATION
  Report Type: 
  Country: None (occurrence: None)
  Receive Date: 20100415
  Receipt Date: 20100406
  Transmission Date: 20101027
  Serious: Yes (Death, Hospitalization, Other)
  Sender: FDA-Public Use
  Company Number: ES-BAXTER-2010BH007970

PATIENT
  Age: 46 Year
  Sex: Female

DRUGS (3)
  1. EXTRANEAL [Suspect]
     Indication: PERITONEAL DIALYSIS
     Route: 033
     Dates: start: 20071018, end: 20100105
  2. PHYSIOSOL IN PLASTIC CONTAINER [Concomitant]
     Indication: PERITONEAL DIALYSIS
     Route: 033
     Dates: start: 20071018
  3. NUTRINEAL [Concomitant]
     Indication: PERITONEAL DIALYSIS
     Route: 033
     Dates: start: 20071018

REACTIONS (6)
  - DEVICE INTERACTION [None]
  - DIABETIC KETOACIDOSIS [None]
  - GRAND MAL CONVULSION [None]
  - HYPERTENSION [None]
  - HYPOGLYCAEMIC COMA [None]
  - RESPIRATORY ARREST [None]
